FAERS Safety Report 21216360 (Version 1)
Quarter: 2022Q3

REPORT INFORMATION
  Report Type: Spontaneous
  Country: US (occurrence: US)
  Receive Date: 20220816
  Receipt Date: 20220816
  Transmission Date: 20221027
  Serious: No
  Sender: FDA-Public Use
  Company Number: US-AMNEAL PHARMACEUTICALS-2022-AMRX-01268

PATIENT
  Age: 49 Year
  Sex: Female
  Weight: 113.39 kg

DRUGS (7)
  1. DOXEPIN HYDROCHLORIDE [Suspect]
     Active Substance: DOXEPIN HYDROCHLORIDE
     Indication: Insomnia
     Dosage: ONCE A DAY, BEDTIME
     Route: 048
     Dates: start: 202111, end: 202203
  2. MYRBETRIQ [Concomitant]
     Active Substance: MIRABEGRON
     Indication: Hypertonic bladder
     Dosage: UNK, 1 /DAY
     Route: 065
     Dates: start: 202104
  3. LOSARTAN [Concomitant]
     Active Substance: LOSARTAN
     Indication: Blood pressure measurement
     Dosage: UNK, 1 /DAY
     Route: 065
     Dates: start: 202004
  4. BUPROPION [Concomitant]
     Active Substance: BUPROPION
     Indication: Depression
     Dosage: UNK, 1 /DAY
     Route: 048
     Dates: start: 201704
  5. PRISTIQ EXTENDED-RELEASE [Concomitant]
     Active Substance: DESVENLAFAXINE SUCCINATE
     Indication: Depression
     Dosage: UNK UNK, 1 /DAY
     Route: 048
     Dates: start: 201204
  6. AMPHETAMINE [Concomitant]
     Active Substance: AMPHETAMINE
     Indication: Attention deficit hyperactivity disorder
     Dosage: UNK UNK, 1 /DAY
     Route: 048
     Dates: start: 202004
  7. QVAR [Concomitant]
     Active Substance: BECLOMETHASONE DIPROPIONATE
     Indication: Product used for unknown indication
     Route: 065

REACTIONS (3)
  - Facial spasm [Not Recovered/Not Resolved]
  - Compulsive lip biting [Not Recovered/Not Resolved]
  - Tongue biting [Not Recovered/Not Resolved]

NARRATIVE: CASE EVENT DATE: 20220101
